FAERS Safety Report 12927859 (Version 11)
Quarter: 2017Q2

REPORT INFORMATION
  Report Type: Report from Study
  Country: BE (occurrence: BE)
  Receive Date: 20161110
  Receipt Date: 20170622
  Transmission Date: 20170830
  Serious: Yes (Death, Hospitalization, Disabling)
  Sender: FDA-Public Use
  Company Number: BE-ROCHE-1847384

PATIENT
  Age: 65 Year
  Sex: Male
  Weight: 108.9 kg

DRUGS (63)
  1. MAGNESIUM SULFATE. [Concomitant]
     Active Substance: MAGNESIUM SULFATE
     Indication: HYPOMAGNESAEMIA
     Route: 065
     Dates: start: 20170115, end: 20170117
  2. ATARAX [Concomitant]
     Active Substance: HYDROXYZINE HYDROCHLORIDE
     Indication: INSOMNIA
     Route: 065
     Dates: start: 20170208
  3. ATEZOLIZUMAB [Suspect]
     Active Substance: ATEZOLIZUMAB
     Indication: NON-SMALL CELL LUNG CANCER STAGE IV
     Dosage: THE DATE OF THE MOST RECENT DOSE OF ATEZOLIZUMAB 1200 MG PRIOR TO SAE ONSET WAS ADMINISTERED ON 17/O
     Route: 042
     Dates: start: 20161017
  4. METFORMIN [Concomitant]
     Active Substance: METFORMIN HYDROCHLORIDE
     Route: 065
  5. IBUPROFEN. [Concomitant]
     Active Substance: IBUPROFEN
     Route: 065
     Dates: start: 20160922, end: 20161027
  6. CACO3 [Concomitant]
     Indication: METASTASES TO BONE
     Route: 065
     Dates: start: 20160922, end: 20170115
  7. CLEXANE [Concomitant]
     Active Substance: ENOXAPARIN SODIUM
     Indication: THROMBOSIS PROPHYLAXIS
     Route: 065
     Dates: start: 20160922, end: 20161129
  8. LITICAN [Concomitant]
     Active Substance: ALIZAPRIDE HYDROCHLORIDE
     Route: 065
     Dates: start: 20170103
  9. KALIUM RETARD [Concomitant]
     Indication: HYPOKALAEMIA
     Route: 065
     Dates: start: 20161103, end: 20161201
  10. EMCONCOR [Concomitant]
     Active Substance: BISOPROLOL FUMARATE
     Indication: TACHYCARDIA
     Route: 065
     Dates: start: 20170208
  11. MONURIL [Concomitant]
     Active Substance: FOSFOMYCIN SODIUM
     Dosage: REPORTED AS : MONURIL 3G (1X)
     Route: 065
     Dates: start: 20170217, end: 20170217
  12. D-CURE [Concomitant]
     Route: 065
     Dates: start: 20160922, end: 20161027
  13. D-CURE [Concomitant]
     Route: 065
     Dates: start: 20160928
  14. DEXAMETHASONE. [Concomitant]
     Active Substance: DEXAMETHASONE
     Route: 065
     Dates: start: 20161204, end: 20161206
  15. EMEND [Concomitant]
     Active Substance: APREPITANT
     Indication: NAUSEA
     Route: 065
     Dates: start: 20161017, end: 20161017
  16. OFLOXACINE [Concomitant]
     Active Substance: OFLOXACIN
     Indication: LEUKOPENIA
     Route: 065
     Dates: start: 20161114, end: 20161121
  17. KALIUM RETARD [Concomitant]
     Indication: HYPOKALAEMIA
     Route: 065
     Dates: start: 20170118, end: 20170124
  18. ONDANSETRON [Concomitant]
     Active Substance: ONDANSETRON
     Route: 065
     Dates: start: 20170102, end: 20170102
  19. TRAZODONE [Concomitant]
     Active Substance: TRAZODONE HYDROCHLORIDE
     Indication: INSOMNIA
     Route: 065
     Dates: start: 20170218, end: 20170220
  20. PEMETREXED. [Suspect]
     Active Substance: PEMETREXED
     Indication: NON-SMALL CELL LUNG CANCER STAGE IV
     Dosage: THE DATE OF THE MOST RECENT DOSE OF PEMETREXED 1215 MG PRIOR TO SAE ONSET WAS ADMINISTERED ON 17/OCT
     Route: 042
     Dates: start: 20161017
  21. ZOLEDRONIC ACID [Concomitant]
     Active Substance: ZOLEDRONIC ACID
     Indication: METASTASES TO BONE
     Route: 065
     Dates: start: 20161006, end: 20170102
  22. UNI DIAMICRON [Concomitant]
     Active Substance: GLICLAZIDE
     Indication: HYPERGLYCAEMIA
     Route: 065
     Dates: start: 2009
  23. ZALDIAR [Concomitant]
     Active Substance: ACETAMINOPHEN\TRAMADOL HYDROCHLORIDE
     Indication: PAIN
     Route: 065
     Dates: start: 20160922, end: 20161025
  24. EMEND [Concomitant]
     Active Substance: APREPITANT
     Route: 065
     Dates: start: 20161108, end: 20161108
  25. DAKTARIN [Concomitant]
     Active Substance: MICONAZOLE NITRATE
     Indication: ORAL FUNGAL INFECTION
     Dosage: 40G (20 MG/1G)
     Route: 048
     Dates: start: 20161205
  26. IBUPROFEN. [Concomitant]
     Active Substance: IBUPROFEN
     Indication: PAIN
     Route: 065
  27. METFORMAX [Concomitant]
     Active Substance: METFORMIN HYDROCHLORIDE
     Indication: HYPERGLYCAEMIA
     Route: 065
     Dates: start: 2008
  28. EMEND [Concomitant]
     Active Substance: APREPITANT
     Route: 065
     Dates: start: 20161018, end: 20161019
  29. EMEND [Concomitant]
     Active Substance: APREPITANT
     Route: 065
     Dates: start: 20161109, end: 20161110
  30. LITICAN [Concomitant]
     Active Substance: ALIZAPRIDE HYDROCHLORIDE
     Indication: NAUSEA
     Route: 065
     Dates: start: 20161018, end: 20161022
  31. LASIX [Concomitant]
     Active Substance: FUROSEMIDE
     Indication: DIURETIC THERAPY
     Route: 065
     Dates: start: 20170102, end: 20170102
  32. ALDACTONE (BELGIUM) [Concomitant]
     Indication: HYPERTENSION
     Route: 065
     Dates: start: 2010
  33. ENOXAPARIN [Concomitant]
     Active Substance: ENOXAPARIN
     Indication: THROMBOSIS PROPHYLAXIS
     Route: 065
     Dates: start: 20161130, end: 20161219
  34. FOLIC ACID. [Concomitant]
     Active Substance: FOLIC ACID
     Indication: PROPHYLACTIC CHEMOTHERAPY
     Route: 065
     Dates: start: 20160922
  35. DEXAMETHASONE. [Concomitant]
     Active Substance: DEXAMETHASONE
     Indication: PROPHYLACTIC CHEMOTHERAPY
     Route: 065
     Dates: start: 20161016, end: 20161018
  36. EMEND [Concomitant]
     Active Substance: APREPITANT
     Route: 065
     Dates: start: 20170103, end: 20170104
  37. LITICAN [Concomitant]
     Active Substance: ALIZAPRIDE HYDROCHLORIDE
     Route: 065
     Dates: start: 20161109, end: 20161113
  38. POTASSIUM CHLORIDE. [Concomitant]
     Active Substance: POTASSIUM CHLORIDE
     Indication: HYPOKALAEMIA
     Route: 065
     Dates: start: 20170115, end: 20170117
  39. DEXDOR [Concomitant]
     Active Substance: DEXMEDETOMIDINE HYDROCHLORIDE
     Route: 065
     Dates: start: 20170125, end: 20170201
  40. DOMINAL (BELGIUM) [Concomitant]
     Indication: INSOMNIA
     Route: 065
     Dates: start: 20170220
  41. CISPLATIN. [Suspect]
     Active Substance: CISPLATIN
     Indication: NON-SMALL CELL LUNG CANCER STAGE IV
     Dosage: THE DATE OF THE MOST RECENT DOSE OF CISPLATIN 180 MG PRIOR TO SAE ONSET WAS ADMINISTERED ON 17/OCT/2
     Route: 042
     Dates: start: 20161017
  42. EMEND [Concomitant]
     Active Substance: APREPITANT
     Route: 065
     Dates: start: 20161205, end: 20161205
  43. OFLOXACINE [Concomitant]
     Active Substance: OFLOXACIN
     Indication: NEUTROPENIA
     Route: 065
     Dates: start: 20161219
  44. ITRACONAZOLE. [Concomitant]
     Active Substance: ITRACONAZOLE
     Route: 065
     Dates: start: 20170109, end: 20170114
  45. INNOHEP [Concomitant]
     Active Substance: TINZAPARIN SODIUM
     Indication: THROMBOSIS PROPHYLAXIS
     Route: 065
     Dates: start: 20170102
  46. CATAPRESSAN [Concomitant]
     Active Substance: CLONIDINE
     Indication: PROPHYLAXIS
     Route: 042
     Dates: start: 20170124, end: 20170124
  47. COMBIVENT [Concomitant]
     Active Substance: ALBUTEROL SULFATE\IPRATROPIUM BROMIDE
     Route: 065
     Dates: start: 20170124
  48. DEXAMETHASONE. [Concomitant]
     Active Substance: DEXAMETHASONE
     Route: 065
     Dates: start: 20170101, end: 20170103
  49. EMEND [Concomitant]
     Active Substance: APREPITANT
     Route: 065
     Dates: start: 20161206, end: 20161207
  50. OFLOXACINE [Concomitant]
     Active Substance: OFLOXACIN
     Route: 065
     Dates: start: 20170109, end: 20170114
  51. ITRACONAZOLE. [Concomitant]
     Active Substance: ITRACONAZOLE
     Indication: LEUKOPENIA
     Route: 065
     Dates: start: 20161114, end: 20161121
  52. ONDANSETRON [Concomitant]
     Active Substance: ONDANSETRON
     Route: 065
     Dates: start: 20161205, end: 20161205
  53. ONDANSETRON [Concomitant]
     Active Substance: ONDANSETRON
     Route: 065
     Dates: start: 20161108, end: 20161108
  54. AMLOR [Concomitant]
     Active Substance: AMLODIPINE BESYLATE
     Indication: HYPERTENSION
     Route: 065
     Dates: start: 2010
  55. D-CURE [Concomitant]
     Indication: PROPHYLACTIC CHEMOTHERAPY
     Route: 065
     Dates: start: 20161018
  56. BURINEX [Concomitant]
     Active Substance: BUMETANIDE
     Indication: DIURETIC THERAPY
     Route: 065
     Dates: start: 2012
  57. LANOXIN [Concomitant]
     Active Substance: DIGOXIN
     Indication: ARRHYTHMIA
     Route: 065
     Dates: start: 2010
  58. DEXAMETHASONE. [Concomitant]
     Active Substance: DEXAMETHASONE
     Route: 065
     Dates: start: 20161107, end: 20161109
  59. EMEND [Concomitant]
     Active Substance: APREPITANT
     Route: 065
     Dates: start: 20170102, end: 20170102
  60. LITICAN [Concomitant]
     Active Substance: ALIZAPRIDE HYDROCHLORIDE
     Route: 065
     Dates: start: 20161206, end: 20161210
  61. ITRACONAZOLE. [Concomitant]
     Active Substance: ITRACONAZOLE
     Indication: NEUTROPENIA
     Route: 065
     Dates: start: 20161219
  62. ITRACONAZOLE. [Concomitant]
     Active Substance: ITRACONAZOLE
     Route: 065
     Dates: start: 20170118, end: 20170120
  63. ONDANSETRON [Concomitant]
     Active Substance: ONDANSETRON
     Indication: NAUSEA
     Route: 065
     Dates: start: 20161017, end: 20161017

REACTIONS (9)
  - Fatigue [Recovered/Resolved]
  - Anaemia [Recovered/Resolved]
  - Febrile neutropenia [Recovered/Resolved]
  - Pneumonia [Recovered/Resolved]
  - Thrombocytopenia [Recovered/Resolved]
  - Hypoxia [Fatal]
  - Pneumonitis [Not Recovered/Not Resolved]
  - Asthenia [Recovered/Resolved]
  - Diarrhoea [Recovered/Resolved]

NARRATIVE: CASE EVENT DATE: 20161020
